FAERS Safety Report 11833652 (Version 2)
Quarter: 2015Q4

REPORT INFORMATION
  Report Type: Spontaneous
  Country: FR (occurrence: FR)
  Receive Date: 20151214
  Receipt Date: 20151222
  Transmission Date: 20160305
  Serious: Yes (Life-Threatening)
  Sender: FDA-Public Use
  Company Number: FR-MALLINCKRODT-T201505559

PATIENT
  Age: 78 Year
  Sex: Female

DRUGS (7)
  1. PERINDOPRIL [Concomitant]
     Active Substance: PERINDOPRIL
  2. HYPERIUM [Concomitant]
     Active Substance: RILMENIDINE PHOSPHATE
  3. LYRICA [Concomitant]
     Active Substance: PREGABALIN
  4. UVEDOSE [Concomitant]
     Active Substance: CHOLECALCIFEROL
  5. OPTIJECT 300 [Suspect]
     Active Substance: IOVERSOL
     Indication: COMPUTERISED TOMOGRAM
     Dosage: 86 ML, SINGLE
     Route: 042
     Dates: start: 20151001, end: 20151001
  6. EDUCTYL [Concomitant]
     Active Substance: POTASSIUM BITARTRATE\SODIUM BICARBONATE
  7. FENTANYL. [Concomitant]
     Active Substance: FENTANYL

REACTIONS (4)
  - Rash macular [Recovered/Resolved]
  - Pyrexia [Recovered/Resolved]
  - Petechiae [Recovered/Resolved]
  - Renal failure [Recovered/Resolved]

NARRATIVE: CASE EVENT DATE: 20151002
